FAERS Safety Report 14222462 (Version 2)
Quarter: 2019Q2

REPORT INFORMATION
  Report Type: Spontaneous
  Country: NL (occurrence: NL)
  Receive Date: 20171124
  Receipt Date: 20190406
  Transmission Date: 20190711
  Serious: Yes (Hospitalization, Other)
  Sender: FDA-Public Use
  Company Number: NL-ACCORD-061398

PATIENT
  Age: 61 Year
  Sex: Female

DRUGS (3)
  1. IMMUNE GLOBULIN NOS [Concomitant]
     Active Substance: IMMUNE GLOBULIN NOS
     Indication: CHRONIC INFLAMMATORY DEMYELINATING POLYRADICULONEUROPATHY
     Route: 042
  2. ANASTROZOLE. [Concomitant]
     Active Substance: ANASTROZOLE
     Indication: BREAST CANCER
  3. ZOLEDRONIC ACID [Suspect]
     Active Substance: ZOLEDRONIC ACID
     Indication: ADJUVANT THERAPY
     Route: 042

REACTIONS (2)
  - Acute phase reaction [Recovering/Resolving]
  - Chronic inflammatory demyelinating polyradiculoneuropathy [Recovering/Resolving]
